FAERS Safety Report 11488395 (Version 2)
Quarter: 2015Q3

REPORT INFORMATION
  Report Type: Spontaneous
  Country: FR (occurrence: FR)
  Receive Date: 20150910
  Receipt Date: 20150928
  Transmission Date: 20151125
  Serious: Yes (Hospitalization, Other)
  Sender: FDA-Public Use
  Company Number: FR-ACTELION-A-CH2015-123690

PATIENT
  Age: 62 Year
  Sex: Female

DRUGS (9)
  1. TRACLEER [Suspect]
     Active Substance: BOSENTAN
     Indication: PULMONARY ARTERIAL HYPERTENSION
     Dosage: 125 MG, BID
     Route: 048
     Dates: start: 2006, end: 20150824
  2. PREVISCAN [Concomitant]
     Active Substance: FLUINDIONE
  3. LASILIX [Concomitant]
     Active Substance: FUROSEMIDE
  4. LEVOTHYROX [Concomitant]
     Active Substance: LEVOTHYROXINE
  5. LOSARTAN. [Concomitant]
     Active Substance: LOSARTAN
  6. DIGOXINE [Concomitant]
     Active Substance: DIGOXIN
  7. CRESTOR [Concomitant]
     Active Substance: ROSUVASTATIN CALCIUM
  8. INEXIUM [Concomitant]
     Active Substance: ESOMEPRAZOLE
  9. REPAGLINIDE. [Concomitant]
     Active Substance: REPAGLINIDE

REACTIONS (6)
  - Extravasation blood [Not Recovered/Not Resolved]
  - Peritoneal haemorrhage [Not Recovered/Not Resolved]
  - Hepatic embolisation [Unknown]
  - Hepatic cancer [Not Recovered/Not Resolved]
  - Hepatic haematoma [Not Recovered/Not Resolved]
  - Shock haemorrhagic [Unknown]

NARRATIVE: CASE EVENT DATE: 20150805
